FAERS Safety Report 4554219-X (Version None)
Quarter: 2005Q1

REPORT INFORMATION
  Report Type: 
  Country: None (occurrence: None)
  Receive Date: 20050118
  Receipt Date: 20041020
  Transmission Date: 20050727
  Serious: Yes (Life-Threatening, Hospitalization)
  Sender: FDA-Public Use
  Company Number: US-BRISTOL-MYERS SQUIBB COMPANY-12738464

PATIENT
  Age: 53 Year
  Sex: Female

DRUGS (5)
  1. ERBITUX [Suspect]
     Indication: COLORECTAL CANCER
     Dosage: LOADING DOSE (680 MG): TOOK 27 CC IVPB PRIOR TO EVENTS, STOPPED AFTER 10 MIN.
     Route: 042
     Dates: start: 20041011, end: 20041011
  2. BENADRYL [Concomitant]
     Indication: PREMEDICATION
     Dosage: GIVEN 1 HOUR BEFORE CETUXIMAB
     Route: 042
     Dates: start: 20041011, end: 20041011
  3. DECADRON [Concomitant]
     Indication: PREMEDICATION
     Dosage: GIVEN 1 HR BEFORE CETUXIMAB
     Route: 042
     Dates: start: 20041011, end: 20041011
  4. ZOFRAN [Concomitant]
     Indication: PREMEDICATION
     Dosage: GIVEN 1 HR BEFORE CETUXIMAB INFUSION
     Route: 048
     Dates: start: 20041011, end: 20041011
  5. TYLENOL [Concomitant]
     Indication: PREMEDICATION
     Dosage: GIVEN 1 HR BEFORE CETUXIMAB
     Route: 048
     Dates: start: 20041011, end: 20041011

REACTIONS (4)
  - BLOOD PRESSURE DECREASED [None]
  - CHEST PAIN [None]
  - DYSPNOEA [None]
  - RASH GENERALISED [None]
